FAERS Safety Report 20563820 (Version 2)
Quarter: 2022Q4

REPORT INFORMATION
  Report Type: Spontaneous
  Country: US (occurrence: US)
  Receive Date: 20220308
  Receipt Date: 20221112
  Transmission Date: 20230112
  Serious: No
  Sender: FDA-Public Use
  Company Number: US-SA-SAC20220301000697

PATIENT
  Age: 50 Year
  Sex: Male

DRUGS (1)
  1. DUPIXENT [Suspect]
     Active Substance: DUPILUMAB
     Dosage: 300 MG, OTHER
     Route: 058
     Dates: start: 202105

REACTIONS (5)
  - Eczema [Unknown]
  - Tinnitus [Unknown]
  - COVID-19 [Not Recovered/Not Resolved]
  - Condition aggravated [Unknown]
  - Dry eye [Unknown]

NARRATIVE: CASE EVENT DATE: 20220225
